FAERS Safety Report 6234002-X (Version None)
Quarter: 2009Q2

REPORT INFORMATION
  Report Type: 
  Country: None (occurrence: None)
  Receive Date: 20090618
  Receipt Date: 20090612
  Transmission Date: 20091009
  Serious: Yes (Other)
  Sender: FDA-Public Use
  Company Number: US-PFIZER INC-2009203531

PATIENT
  Sex: Female
  Weight: 50.794 kg

DRUGS (1)
  1. DEPO-PROVERA [Suspect]
     Indication: CONTRACEPTION
     Dosage: 150 MG, UNK
     Dates: start: 20070401

REACTIONS (4)
  - COLD SWEAT [None]
  - FEELING HOT [None]
  - SYNCOPE [None]
  - VISUAL IMPAIRMENT [None]
